FAERS Safety Report 5413530-0 (Version None)
Quarter: 2007Q3

REPORT INFORMATION
  Report Type: 
  Country: None (occurrence: None)
  Receive Date: 20070810
  Receipt Date: 20070601
  Transmission Date: 20080115
  Serious: No
  Sender: FDA-Public Use
  Company Number: TPA2007A00985

PATIENT
  Age: 85 Year
  Sex: Male
  Weight: 65.7716 kg

DRUGS (6)
  1. ROZEREM [Suspect]
     Indication: INITIAL INSOMNIA
     Dosage: 8 MG, HS, PER ORAL
     Route: 048
     Dates: start: 20070101
  2. TRUSOPT [Concomitant]
  3. XALATAN [Concomitant]
  4. PROSCAR [Concomitant]
  5. AMBIEN CR [Concomitant]
  6. UNK HERBAL SUPPLEMENTS (HERBAL PREPARATION) [Concomitant]

REACTIONS (3)
  - DRUG INEFFECTIVE [None]
  - EXPIRED DRUG ADMINISTERED [None]
  - INITIAL INSOMNIA [None]
